FAERS Safety Report 8482188 (Version 2)
Quarter: 2013Q2

REPORT INFORMATION
  Report Type: Spontaneous
  Country: US (occurrence: US)
  Receive Date: 20120329
  Receipt Date: 20130422
  Transmission Date: 20140414
  Serious: Yes (Hospitalization, Other)
  Sender: FDA-Public Use
  Company Number: US-ROCHE-1053288

PATIENT
  Age: 25 Year
  Sex: Male
  Weight: 72.64 kg

DRUGS (2)
  1. ACCUTANE [Suspect]
     Indication: ACNE
     Route: 048
     Dates: start: 199509, end: 19960225
  2. ACCUTANE [Suspect]
     Route: 048
     Dates: start: 19991204, end: 20000513

REACTIONS (10)
  - Small intestinal obstruction [Recovered/Resolved]
  - Inflammatory bowel disease [Unknown]
  - Crohn^s disease [Unknown]
  - Injury [Unknown]
  - Depression [Unknown]
  - Colitis ulcerative [Unknown]
  - Large intestine polyp [Unknown]
  - Upper respiratory tract infection [Unknown]
  - Dry skin [Unknown]
  - Myalgia [Unknown]
